FAERS Safety Report 5725282-5 (Version None)
Quarter: 2008Q2

REPORT INFORMATION
  Report Type: 
  Country: None (occurrence: None)
  Receive Date: 20080429
  Receipt Date: 20080414
  Transmission Date: 20081010
  Serious: Yes (Other)
  Sender: FDA-Public Use
  Company Number: GXKR2008TR03817

PATIENT
  Age: 14 Year
  Sex: Female

DRUGS (5)
  1. FLUCONAZOLE [Suspect]
     Indication: FUNGUS URINE TEST POSITIVE
  2. RETINOIC ACID (TRETINOIN) UNKNOWN [Suspect]
     Indication: ACUTE MYELOID LEUKAEMIA
  3. CEFEPIME [Concomitant]
  4. AMIKACIN [Concomitant]
  5. MEROPENEM (MEROPENEM) [Concomitant]

REACTIONS (8)
  - CHEMOTHERAPEUTIC DRUG LEVEL INCREASED [None]
  - FEBRILE NEUTROPENIA [None]
  - HAEMODIALYSIS [None]
  - INHIBITORY DRUG INTERACTION [None]
  - NEPHROPATHY TOXIC [None]
  - PERITONEAL DIALYSIS [None]
  - RENAL FAILURE ACUTE [None]
  - SEPSIS [None]
